FAERS Safety Report 10435771 (Version 3)
Quarter: 2014Q4

REPORT INFORMATION
  Report Type: Spontaneous
  Country: BE (occurrence: BE)
  Receive Date: 20140908
  Receipt Date: 20141211
  Transmission Date: 20150528
  Serious: Yes (Hospitalization)
  Sender: FDA-Public Use
  Company Number: BE-JNJFOC-20140823462

PATIENT
  Age: 87 Year
  Sex: Male
  Weight: 83.6 kg

DRUGS (9)
  1. RYTMONORMA [Concomitant]
     Indication: HEART RATE
     Dosage: TOTAL DAILYY DOSE-600 MG
     Route: 048
  2. ZYTIGA [Suspect]
     Active Substance: ABIRATERONE ACETATE
     Indication: PROSTATE CANCER
     Route: 048
     Dates: start: 20140708, end: 20140827
  3. LYRICA [Concomitant]
     Active Substance: PREGABALIN
     Indication: PAIN
     Dosage: TOTAL DAILY DOSE-450 MG
     Route: 048
  4. TRADONAL [Concomitant]
     Active Substance: TRAMADOL HYDROCHLORIDE
     Indication: PAIN
     Dosage: 4 DROPS 3X/DAY
     Route: 048
     Dates: start: 20140814, end: 20140827
  5. PARACETAMOL [Concomitant]
     Active Substance: ACETAMINOPHEN
     Indication: PAIN
     Dosage: 4 G
     Route: 048
     Dates: start: 20140814
  6. STILNOCT [Concomitant]
     Active Substance: ZOLPIDEM TARTRATE
     Indication: INSOMNIA
     Dosage: TOTAL DAILY DOSE-5 MG
     Route: 048
  7. DUROGESIC [Concomitant]
     Active Substance: FENTANYL
     Indication: PAIN
     Dosage: 1 PATCH/72 HOURS
     Route: 062
     Dates: start: 20140819
  8. PREDNISONE. [Concomitant]
     Active Substance: PREDNISONE
     Indication: PROSTATE CANCER
     Dosage: TOTAL DAILYY DOSE-10 MG
     Route: 048
     Dates: start: 20140718, end: 20140827
  9. RISPERDAL [Concomitant]
     Active Substance: RISPERIDONE
     Dosage: TOTAL DAILY DOSE-5 MG
     Route: 048
     Dates: start: 20140818

REACTIONS (4)
  - Rhabdomyolysis [Unknown]
  - Lower extremity mass [Unknown]
  - Musculoskeletal pain [Recovered/Resolved]
  - Erythema [Unknown]

NARRATIVE: CASE EVENT DATE: 20140823
